FAERS Safety Report 13512112 (Version 1)
Quarter: 2017Q2

REPORT INFORMATION
  Report Type: Spontaneous
  Country: US (occurrence: US)
  Receive Date: 20170504
  Receipt Date: 20170504
  Transmission Date: 20170830
  Serious: No
  Sender: FDA-Public Use
  Company Number: US-TEVA-723648ACC

PATIENT
  Sex: Male
  Weight: 99.88 kg

DRUGS (9)
  1. GABAPENTIN. [Concomitant]
     Active Substance: GABAPENTIN
     Indication: NEUROPATHY PERIPHERAL
     Dosage: THREE CAPSULES IN THE MORNING AND THREE CAPSULES AT NIGHT
     Route: 048
  2. VITAMIN B6 [Concomitant]
     Active Substance: PYRIDOXINE HYDROCHLORIDE
     Dosage: 100 MILLIGRAM DAILY;
  3. NICOTINIC ACID [Suspect]
     Active Substance: NIACIN
  4. VITAMIN B12 [Concomitant]
     Active Substance: CYANOCOBALAMIN
     Dosage: 1000 MICROGRAM DAILY;
  5. AMLODIPINE BES [Concomitant]
     Dosage: 2.5 MILLIGRAM DAILY;
  6. ASPIRIN. [Concomitant]
     Active Substance: ASPIRIN
     Dosage: ONE AT NIGHT AND SOMETIMES ONE IN THE MORNING
  7. FOLIC ACID. [Concomitant]
     Active Substance: FOLIC ACID
     Dosage: 1 MILLIGRAM DAILY;
  8. ZETIA [Concomitant]
     Active Substance: EZETIMIBE
  9. VITAMIN D3 [Concomitant]
     Active Substance: CHOLECALCIFEROL
     Dosage: 5000 IU (INTERNATIONAL UNIT) DAILY;

REACTIONS (1)
  - Pain in extremity [Not Recovered/Not Resolved]
